FAERS Safety Report 17032971 (Version 1)
Quarter: 2019Q4

REPORT INFORMATION
  Report Type: Spontaneous
  Country: US (occurrence: US)
  Receive Date: 20191114
  Receipt Date: 20191114
  Transmission Date: 20200122
  Serious: Yes (Other)
  Sender: FDA-Public Use
  Company Number: US-SHIRE-US201938740

PATIENT
  Age: 62 Year
  Sex: Male

DRUGS (1)
  1. VYVANSE [Suspect]
     Active Substance: LISDEXAMFETAMINE DIMESYLATE
     Indication: ATTENTION DEFICIT/HYPERACTIVITY DISORDER
     Dosage: 30 MILLIGRAM, 1X/DAY:QD
     Route: 048

REACTIONS (7)
  - Eye haemorrhage [Unknown]
  - Retinal detachment [Unknown]
  - Prostatomegaly [Not Recovered/Not Resolved]
  - Vasculitis [Unknown]
  - Blood urine present [Unknown]
  - Blindness [Unknown]
  - Haematospermia [Unknown]

NARRATIVE: CASE EVENT DATE: 2019
